FAERS Safety Report 14417507 (Version 1)
Quarter: 2018Q1

REPORT INFORMATION
  Report Type: Spontaneous
  Country: US (occurrence: US)
  Receive Date: 20180122
  Receipt Date: 20180122
  Transmission Date: 20180509
  Serious: No
  Sender: FDA-Public Use
  Company Number: US-009507513-1801USA002130

PATIENT
  Age: 23 Year
  Sex: Female

DRUGS (10)
  1. FENTANYL. [Concomitant]
     Active Substance: FENTANYL
     Dosage: DOSE DECREASED
  2. DIAZEPAM. [Concomitant]
     Active Substance: DIAZEPAM
     Indication: SEDATION
     Dosage: 260 MG PER DAY
     Route: 042
  3. METHADONE HYDROCHLORIDE. [Concomitant]
     Active Substance: METHADONE HYDROCHLORIDE
     Indication: REVERSAL OF SEDATION
  4. FENTANYL. [Concomitant]
     Active Substance: FENTANYL
     Indication: SEDATION
     Dosage: 250 MCG/H
  5. PROPOFOL. [Concomitant]
     Active Substance: PROPOFOL
     Indication: SEDATION
     Dosage: 75 MG/H
  6. ZEMURON [Suspect]
     Active Substance: ROCURONIUM BROMIDE
     Indication: HYPOXIA
  7. DEXMEDETOMIDINE. [Concomitant]
     Active Substance: DEXMEDETOMIDINE
     Dosage: DOSE DECREASED
  8. ZEMURON [Suspect]
     Active Substance: ROCURONIUM BROMIDE
     Indication: HAEMODYNAMIC INSTABILITY
     Dosage: UP TO 500 MG/DAY
  9. DEXMEDETOMIDINE. [Concomitant]
     Active Substance: DEXMEDETOMIDINE
     Indication: SEDATION
     Dosage: 1.5 MCG/H
  10. PROPOFOL. [Concomitant]
     Active Substance: PROPOFOL
     Dosage: DOSE DECREASED

REACTIONS (1)
  - Off label use [Unknown]
